FAERS Safety Report 7079462-X (Version None)
Quarter: 2010Q4

REPORT INFORMATION
  Report Type: 
  Country: None (occurrence: None)
  Receive Date: 20101022
  Receipt Date: 20101012
  Transmission Date: 20110411
  Serious: Yes (Other)
  Sender: FDA-Public Use
  Company Number: 2010PL000153

PATIENT
  Age: 14 Year
  Sex: Male

DRUGS (2)
  1. MERCAPTOPURINE [Suspect]
     Indication: CROHN'S DISEASE
     Dosage: 50 MG; QD; PO
     Route: 048
     Dates: start: 20010601
  2. ANTI-TUMOR NECROSIS FACTOR MONOCLON. ANTIBODY (ANTI-TUMOR NECROSIS FAC [Suspect]
     Indication: CROHN'S DISEASE
     Dosage: 100 MG; IV
     Route: 042
     Dates: start: 20030401

REACTIONS (3)
  - BLOOD PRODUCT TRANSFUSION DEPENDENT [None]
  - DIARRHOEA [None]
  - SCAN BONE MARROW ABNORMAL [None]
